FAERS Safety Report 9903783 (Version 3)
Quarter: 2014Q2

REPORT INFORMATION
  Report Type: Spontaneous
  Country: DE (occurrence: DE)
  Receive Date: 20140218
  Receipt Date: 20140418
  Transmission Date: 20141212
  Serious: Yes (Hospitalization)
  Sender: FDA-Public Use
  Company Number: DE-PFIZER INC-2014040914

PATIENT
  Age: 18 Year
  Sex: Female

DRUGS (4)
  1. GENOTROPIN MINIQUICK [Suspect]
     Indication: BODY HEIGHT DECREASED
  2. GENOTROPIN MINIQUICK [Suspect]
     Indication: GROWTH RETARDATION
  3. GENOTROPIN MINIQUICK [Suspect]
     Indication: HUMAN CHORIONIC GONADOTROPIN DECREASED
  4. GENOTROPIN MINIQUICK [Suspect]
     Indication: DWARFISM

REACTIONS (4)
  - Abdominal pain [Unknown]
  - Off label use [Unknown]
  - Stress [Unknown]
  - Depression [Unknown]
